FAERS Safety Report 24345146 (Version 1)
Quarter: 2024Q3

REPORT INFORMATION
  Report Type: Spontaneous
  Country: CN (occurrence: CN)
  Receive Date: 20240920
  Receipt Date: 20240920
  Transmission Date: 20241017
  Serious: Yes (Hospitalization, Other)
  Sender: NOVARTIS
  Company Number: CN-002147023-NVSC2024CN184858

PATIENT
  Age: 31 Year
  Sex: Male

DRUGS (8)
  1. KISQALI [Suspect]
     Active Substance: RIBOCICLIB
     Indication: Breast cancer
     Dosage: 600 MG, QD
     Route: 048
     Dates: start: 20240603, end: 20240610
  2. KISQALI [Suspect]
     Active Substance: RIBOCICLIB
     Indication: Bone cancer
  3. AROMASIN [Suspect]
     Active Substance: EXEMESTANE
     Indication: Breast cancer
     Dosage: 25 MG, QD
     Route: 048
     Dates: start: 20240603, end: 20240610
  4. AROMASIN [Suspect]
     Active Substance: EXEMESTANE
     Indication: Bone cancer
  5. XGEVA [Suspect]
     Active Substance: DENOSUMAB
     Indication: Breast cancer
     Dosage: 120 MG, QD
     Route: 065
     Dates: start: 20240603, end: 20240610
  6. XGEVA [Suspect]
     Active Substance: DENOSUMAB
     Indication: Bone cancer
  7. GOSERELIN [Suspect]
     Active Substance: GOSERELIN
     Indication: Breast cancer
     Dosage: 3.6 MG, QD
     Route: 065
     Dates: start: 20240603, end: 20240610
  8. GOSERELIN [Suspect]
     Active Substance: GOSERELIN
     Indication: Bone cancer

REACTIONS (1)
  - Myelosuppression [Recovering/Resolving]

NARRATIVE: CASE EVENT DATE: 20240701
